FAERS Safety Report 8988528 (Version 1)
Quarter: 2012Q4

REPORT INFORMATION
  Report Type: Spontaneous
  Country: FR (occurrence: None)
  Receive Date: 20121218
  Receipt Date: 20121218
  Transmission Date: 20130627
  Serious: Yes (Other)
  Sender: FDA-Public Use
  Company Number: 2012P1066633

PATIENT
  Sex: Male

DRUGS (1)
  1. INFUMORPH [Suspect]

REACTIONS (2)
  - Pain [None]
  - Device occlusion [None]
